FAERS Safety Report 5788804-4 (Version None)
Quarter: 2008Q2

REPORT INFORMATION
  Report Type: 
  Country: None (occurrence: None)
  Receive Date: 20080618
  Receipt Date: 20080312
  Transmission Date: 20081010
  Serious: Yes (Other)
  Sender: FDA-Public Use
  Company Number: 200718828US

PATIENT
  Age: 72 Year
  Sex: Male
  Weight: 109.1 kg

DRUGS (7)
  1. LANTUS [Suspect]
     Indication: TYPE 2 DIABETES MELLITUS
     Dosage: 17 TO 20 U HS INJ
     Dates: start: 20040101
  2. OPTICLIK [Suspect]
     Indication: TYPE 2 DIABETES MELLITUS
     Dates: start: 20040101
  3. ADENOSINE (TRICOR /00090101/) [Concomitant]
  4. METFORMIN HCL [Concomitant]
  5. HUMALOG [Concomitant]
  6. INSULIN LISPRO (HUMALOG /01293501/) [Concomitant]
  7. LEUPRORELIN ACETATE (LUPRON) [Concomitant]

REACTIONS (3)
  - ALTERED STATE OF CONSCIOUSNESS [None]
  - BLOOD GLUCOSE INCREASED [None]
  - HYPOGLYCAEMIA [None]
